FAERS Safety Report 4334242-0 (Version None)
Quarter: 2004Q2

REPORT INFORMATION
  Report Type: 
  Country: None (occurrence: None)
  Receive Date: 20040405
  Receipt Date: 20040326
  Transmission Date: 20050107
  Serious: Yes (Hospitalization)
  Sender: FDA-Public Use
  Company Number: 040329-0000324

PATIENT
  Age: 44 Year
  Sex: Male

DRUGS (1)
  1. METHAMPHETAMINE HCL [Suspect]
     Dosage: NAS

REACTIONS (9)
  - ALCOHOL USE [None]
  - ANAL INJURY [None]
  - DEPRESSED MOOD [None]
  - DEPRESSION [None]
  - DRUG TOXICITY [None]
  - FEELING ABNORMAL [None]
  - FEELING GUILTY [None]
  - RECTAL HAEMORRHAGE [None]
  - SELF MUTILATION [None]
